FAERS Safety Report 5399860-X (Version None)
Quarter: 2007Q3

REPORT INFORMATION
  Report Type: 
  Country: None (occurrence: None)
  Receive Date: 20070730
  Receipt Date: 20070727
  Transmission Date: 20080115
  Serious: Yes (Death, Hospitalization)
  Sender: FDA-Public Use
  Company Number: PHEH2007US06400

PATIENT
  Age: 66 Year
  Sex: Female
  Weight: 59.41 kg

DRUGS (15)
  1. ZELNORM [Suspect]
     Indication: CONSTIPATION
     Dosage: 6 MG, BID
     Route: 048
     Dates: start: 20070329, end: 20070416
  2. GEMZAR [Concomitant]
  3. CARBOPLATIN [Concomitant]
  4. RADIOTHERAPY [Concomitant]
  5. AMBIEN [Concomitant]
  6. CARAFATE [Concomitant]
  7. DAYPRO [Concomitant]
  8. DURAGESIC-100 [Concomitant]
     Route: 062
  9. FLEXERIL [Concomitant]
  10. FLONASE [Concomitant]
  11. POTASSIUM CHLORIDE [Concomitant]
  12. LORTAB [Concomitant]
  13. MEGACE [Concomitant]
  14. PROTONIX [Concomitant]
  15. REGLAN [Concomitant]

REACTIONS (18)
  - ANXIETY [None]
  - BACK PAIN [None]
  - BRAIN NATRIURETIC PEPTIDE [None]
  - CARDIAC FAILURE CONGESTIVE [None]
  - CHEST PAIN [None]
  - CHILLS [None]
  - CONCOMITANT DISEASE PROGRESSION [None]
  - CORONARY ARTERIAL STENT INSERTION [None]
  - DEATH [None]
  - DEEP VEIN THROMBOSIS [None]
  - FATIGUE [None]
  - GASTROINTESTINAL DISORDER [None]
  - HYPERHIDROSIS [None]
  - MYOCARDIAL INFARCTION [None]
  - OEDEMA PERIPHERAL [None]
  - PAIN [None]
  - PULMONARY EMBOLISM [None]
  - VENA CAVA FILTER INSERTION [None]
